FAERS Safety Report 5017694-2 (Version None)
Quarter: 2006Q2

REPORT INFORMATION
  Report Type: 
  Country: None (occurrence: None)
  Receive Date: 20060525
  Receipt Date: 20060517
  Transmission Date: 20061013
  Serious: Yes (Other)
  Sender: FDA-Public Use
  Company Number: 2005-03-1771

PATIENT
  Age: 32 Year
  Sex: Male
  Weight: 101.1521 kg

DRUGS (4)
  1. LOTRISONE [Suspect]
     Indication: TINEA CRURIS
     Dosage: 2 DOSES TOP-DERM
     Route: 061
     Dates: start: 20050318
  2. FLUCONAZOLE [Concomitant]
  3. MICONAZOLE TOP-DERM [Concomitant]
  4. ZEASORB POWDER [Concomitant]

REACTIONS (18)
  - ABDOMINAL DISCOMFORT [None]
  - ABDOMINAL PAIN [None]
  - ACCIDENTAL EXPOSURE [None]
  - ANAPHYLACTIC REACTION [None]
  - ANOREXIA [None]
  - ARTHRALGIA [None]
  - ASTHENIA [None]
  - BURNING SENSATION [None]
  - CHEST PAIN [None]
  - DIZZINESS [None]
  - DRUG HYPERSENSITIVITY [None]
  - DRUG INEFFECTIVE [None]
  - EPISTAXIS [None]
  - GROIN PAIN [None]
  - HAEMORRHAGE [None]
  - INCORRECT ROUTE OF DRUG ADMINISTRATION [None]
  - PAIN IN EXTREMITY [None]
  - TREMOR [None]
